FAERS Safety Report 6287464-6 (Version None)
Quarter: 2009Q3

REPORT INFORMATION
  Report Type: 
  Country: None (occurrence: None)
  Receive Date: 20090727
  Receipt Date: 20090722
  Transmission Date: 20100115
  Serious: Yes (Disabling)
  Sender: FDA-Public Use
  Company Number: 2009SP015783

PATIENT
  Age: 26 Year
  Sex: Male

DRUGS (4)
  1. NOXAFIL [Suspect]
     Indication: ASPERGILLOSIS
     Dosage: PO
     Route: 048
     Dates: start: 20090519
  2. AMBISOME [Suspect]
     Indication: ASPERGILLOSIS
     Dosage: IV
     Route: 042
     Dates: start: 20090514, end: 20090526
  3. IBUPROFENE (IBUPROFEN) [Suspect]
     Indication: DRUG USE FOR UNKNOWN INDICATION
     Dosage: 400 MG;TID;PO
     Route: 048
  4. TOBRAMYCIN SULFATE [Suspect]
     Indication: PSEUDOMONAS INFECTION
     Dosage: IV
     Route: 042
     Dates: start: 20090514, end: 20090519

REACTIONS (3)
  - HYPOACUSIS [None]
  - TINNITUS [None]
  - WHEEZING [None]
